FAERS Safety Report 6184849-3 (Version None)
Quarter: 2009Q2

REPORT INFORMATION
  Report Type: 
  Country: None (occurrence: None)
  Receive Date: 20090508
  Receipt Date: 20090429
  Transmission Date: 20091009
  Serious: Yes (Life-Threatening, Hospitalization, Disabling)
  Sender: FDA-Public Use
  Company Number: RO-ABBOTT-09P-135-0568761-00

PATIENT
  Sex: Male
  Weight: 50 kg

DRUGS (9)
  1. HUMIRA [Suspect]
     Indication: ANKYLOSING SPONDYLITIS
     Route: 058
     Dates: start: 20081101, end: 20090417
  2. HUMIRA [Suspect]
     Route: 058
     Dates: start: 20080601, end: 20081101
  3. SULFASALAZINE [Suspect]
     Indication: ANKYLOSING SPONDYLITIS
     Dosage: 6G DAILY
     Route: 048
     Dates: end: 20090417
  4. SULFASALAZINE [Suspect]
     Indication: INFLAMMATORY BOWEL DISEASE
     Dosage: 3G DAILY
     Route: 048
     Dates: start: 20081101
  5. SULFASALAZINE [Suspect]
     Dosage: 3G DAILY
     Dates: start: 20070701, end: 20080601
  6. MEDROL [Suspect]
     Indication: ANKYLOSING SPONDYLITIS
     Dosage: 80 MG DAILY
     Dates: end: 20090417
  7. MEDROL [Suspect]
     Indication: INFLAMMATORY BOWEL DISEASE
     Dosage: 16 MG DAILY
     Dates: start: 20081101
  8. MEDROL [Suspect]
     Dosage: 16 MG DAILY
     Dates: start: 20081101
  9. MEDROL [Suspect]
     Dosage: 16-32 MG
     Dates: start: 20071101, end: 20080601

REACTIONS (5)
  - ANAEMIA [None]
  - ARTHROPATHY [None]
  - DIARRHOEA HAEMORRHAGIC [None]
  - GENERAL PHYSICAL HEALTH DETERIORATION [None]
  - UPPER GASTROINTESTINAL HAEMORRHAGE [None]
